FAERS Safety Report 6028801-7 (Version None)
Quarter: 2009Q1

REPORT INFORMATION
  Report Type: 
  Country: None (occurrence: None)
  Receive Date: 20090102
  Receipt Date: 20081218
  Transmission Date: 20090719
  Serious: Yes (Hospitalization)
  Sender: FDA-Public Use
  Company Number: 2008SP025770

PATIENT
  Age: 69 Year
  Sex: Female

DRUGS (4)
  1. INTRON A [Suspect]
     Indication: MALIGNANT MELANOMA
     Dosage: 20 MIU; BIW; SC
     Route: 058
     Dates: start: 20071016, end: 20080704
  2. ACETAMINOPHEN [Concomitant]
  3. COROPRES [Concomitant]
  4. NOLOTIL [Concomitant]

REACTIONS (1)
  - ACQUIRED HAEMOPHILIA [None]
